FAERS Safety Report 14176212 (Version 2)
Quarter: 2018Q1

REPORT INFORMATION
  Report Type: Spontaneous
  Country: JP (occurrence: JP)
  Receive Date: 20171109
  Receipt Date: 20180220
  Transmission Date: 20180508
  Serious: Yes (Other)
  Sender: FDA-Public Use
  Company Number: JP-ALLERGAN-1764201US

PATIENT
  Age: 69 Year
  Sex: Female

DRUGS (7)
  1. DEPAS [Concomitant]
     Active Substance: ETIZOLAM
     Indication: INSOMNIA
     Dosage: 0.5 MG, QD
     Dates: start: 20110513, end: 20110901
  2. GRAMALIL [Concomitant]
     Active Substance: TIAPRIDE HYDROCHLORIDE
     Indication: TORTICOLLIS
     Dosage: 50 MG, QD
     Dates: start: 20110218, end: 20110421
  3. LENDORMIN DAINIPPO [Concomitant]
     Active Substance: BROTIZOLAM
     Indication: INSOMNIA
     Dosage: 0.25 MG, QD
     Dates: start: 20110218, end: 20110901
  4. BOTOX [Suspect]
     Active Substance: ONABOTULINUMTOXINA
     Dosage: 100 UNITS, SINGLE
     Route: 030
     Dates: start: 20110121, end: 20110121
  5. BOTOX [Suspect]
     Active Substance: ONABOTULINUMTOXINA
     Indication: TORTICOLLIS
     Dosage: REDUCED DOSE, SINGLE
     Route: 030
     Dates: start: 20110422, end: 20110422
  6. RIVOTRIL [Concomitant]
     Active Substance: CLONAZEPAM
     Indication: TORTICOLLIS
     Dosage: 0.5 MG, QD
     Dates: start: 20110121, end: 20110512
  7. MYSLEE [Concomitant]
     Active Substance: ZOLPIDEM TARTRATE
     Indication: INSOMNIA
     Dosage: 5 MG, QD
     Dates: start: 20110121, end: 20110901

REACTIONS (3)
  - Choking [Unknown]
  - Prescribed overdose [Unknown]
  - Dysphagia [Unknown]

NARRATIVE: CASE EVENT DATE: 20110121
